FAERS Safety Report 6400934-2 (Version None)
Quarter: 2009Q4

REPORT INFORMATION
  Report Type: 
  Country: None (occurrence: None)
  Receive Date: 20091009
  Receipt Date: 20091005
  Transmission Date: 20100525
  Serious: Yes (Other)
  Sender: FDA-Public Use
  Company Number: 2009US003668

PATIENT
  Age: 24 Year
  Sex: Female
  Weight: 90.7 kg

DRUGS (4)
  1. PROGRAF [Suspect]
     Indication: RENAL TRANSPLANT
     Dosage: 5 MG, UID/QD, ORAL
     Route: 048
  2. CELLCEPT [Concomitant]
  3. PREDNISONE TAB [Concomitant]
  4. PENICILLIN (BENZYLPENICILLIN) [Concomitant]

REACTIONS (3)
  - ABORTION SPONTANEOUS [None]
  - DRUG EXPOSURE DURING PREGNANCY [None]
  - PREGNANCY [None]
